FAERS Safety Report 7476088-0 (Version None)
Quarter: 2011Q2

REPORT INFORMATION
  Report Type: 
  Country: None (occurrence: None)
  Receive Date: 20110512
  Receipt Date: 20110506
  Transmission Date: 20111010
  Serious: Yes (Hospitalization)
  Sender: FDA-Public Use
  Company Number: IT-BRISTOL-MYERS SQUIBB COMPANY-15736721

PATIENT
  Age: 65 Year
  Sex: Male

DRUGS (4)
  1. FLUOROURACIL [Suspect]
     Indication: HEPATIC NEOPLASM MALIGNANT
     Dosage: 748MG (BOLUS)
     Route: 042
     Dates: start: 20110110
  2. LEUCOVORIN CALCIUM [Suspect]
     Indication: HEPATIC NEOPLASM MALIGNANT
     Dates: start: 20110110
  3. ERBITUX [Suspect]
     Indication: HEPATIC NEOPLASM MALIGNANT
     Dates: start: 20110110
  4. CAMPTOSAR [Suspect]
     Indication: HEPATIC NEOPLASM MALIGNANT
     Dates: start: 20110110

REACTIONS (3)
  - MICTURITION URGENCY [None]
  - DYSURIA [None]
  - STRANGURY [None]
